FAERS Safety Report 7978391-4 (Version None)
Quarter: 2011Q4

REPORT INFORMATION
  Report Type: 
  Country: None (occurrence: None)
  Receive Date: 20111205
  Receipt Date: 20111124
  Transmission Date: 20120403
  Serious: Yes (Death, Hospitalization)
  Sender: FDA-Public Use
  Company Number: 2011SP053960

PATIENT
  Age: 65 Year
  Sex: Female

DRUGS (13)
  1. SYCREST (ASENAPINE) [Suspect]
     Indication: PRODUCT USED FOR UNKNOWN INDICATION
     Dosage: 10 MG;QD; 20MG;QD;
     Dates: start: 20111113, end: 20111114
  2. SYCREST (ASENAPINE) [Suspect]
     Indication: PRODUCT USED FOR UNKNOWN INDICATION
     Dosage: 10 MG;QD; 20MG;QD;
     Dates: start: 20111111, end: 20111111
  3. D VITAMIN [Concomitant]
  4. SEROQUEL [Concomitant]
  5. SOLIAN [Concomitant]
  6. VALPROATE SODIUM [Concomitant]
  7. CISORDINOL ACUTARD [Concomitant]
  8. TOPAMAX [Concomitant]
  9. ZYPREXA [Concomitant]
  10. SEROQUEL XR [Concomitant]
  11. ZYPREXA [Concomitant]
  12. UNIKALK FORTE WITH D-VITAMIN [Concomitant]
  13. LAMICTAL [Concomitant]

REACTIONS (16)
  - LOGORRHOEA [None]
  - DISORIENTATION [None]
  - ABDOMINAL DISTENSION [None]
  - TREATMENT NONCOMPLIANCE [None]
  - INSOMNIA [None]
  - AGGRESSION [None]
  - UNEVALUABLE EVENT [None]
  - BLOOD CREATININE INCREASED [None]
  - SOMNOLENCE [None]
  - MALAISE [None]
  - BILIARY TRACT DISORDER [None]
  - AGITATION [None]
  - CONDITION AGGRAVATED [None]
  - ILEUS [None]
  - CARDIAC ARREST [None]
  - URINE OUTPUT DECREASED [None]
